FAERS Safety Report 22296623 (Version 1)
Quarter: 2023Q2

REPORT INFORMATION
  Report Type: Spontaneous
  Country: MY (occurrence: MY)
  Receive Date: 20230508
  Receipt Date: 20230508
  Transmission Date: 20230722
  Serious: Yes (Hospitalization)
  Sender: FDA-Public Use
  Company Number: MY-STRIDES ARCOLAB LIMITED-2023SP006674

PATIENT
  Age: 69 Year
  Sex: Male

DRUGS (8)
  1. LAMIVUDINE [Suspect]
     Active Substance: LAMIVUDINE
     Indication: Chronic hepatitis B
     Dosage: 100 MILLIGRAM PER DAY (TABLET)
     Route: 065
  2. METFORMIN [Suspect]
     Active Substance: METFORMIN HYDROCHLORIDE
     Indication: Diabetes mellitus
     Dosage: 1 GRAM PER DAY
     Route: 065
  3. ISOPHANE INSULIN [Suspect]
     Active Substance: INSULIN NOS
     Indication: Diabetes mellitus
     Dosage: UNK; 8 UNITS, BASAL BOLUS THERAPY
     Route: 058
  4. ISOPHANE INSULIN [Suspect]
     Active Substance: INSULIN NOS
     Dosage: UNK; INSULIN AND INSULIN-SUSPENSION-ISOPHANE WAS DECREASED
     Route: 065
  5. ISOPHANE INSULIN [Suspect]
     Active Substance: INSULIN NOS
     Dosage: UNK; INSULIN AND INSULIN-SUSPENSION-ISOPHANE WAS REINTRODUCED
     Route: 058
  6. ACTRAPID [Suspect]
     Active Substance: INSULIN HUMAN
     Indication: Diabetes mellitus
     Dosage: UNK, TID; 6 UNIT 3 TIMES DAILY PREMEAL INJECTION; PREMEAL
     Route: 065
  7. ACTRAPID [Suspect]
     Active Substance: INSULIN HUMAN
     Dosage: UNK; INSULIN AND INSULIN-SUSPENSION-ISOPHANE WAS DECREASED
     Route: 065
  8. ACTRAPID [Suspect]
     Active Substance: INSULIN HUMAN
     Dosage: UNK; INSULIN AND INSULIN-SUSPENSION-ISOPHANE WAS REINTRODUCED.
     Route: 065

REACTIONS (2)
  - Hypoglycaemia [Recovered/Resolved]
  - Off label use [Unknown]
